FAERS Safety Report 9207051 (Version 1)
Quarter: 2013Q2

REPORT INFORMATION
  Report Type: Spontaneous
  Country: US (occurrence: US)
  Receive Date: 20130403
  Receipt Date: 20130403
  Transmission Date: 20140414
  Serious: No
  Sender: FDA-Public Use
  Company Number: US-009507513-1304USA000744

PATIENT
  Sex: Female

DRUGS (2)
  1. JANUVIA [Suspect]
     Dosage: 100 MG, UNK
     Route: 048
  2. METFORMIN [Concomitant]

REACTIONS (4)
  - VIIth nerve paralysis [Unknown]
  - Poor quality sleep [Unknown]
  - Diarrhoea [Unknown]
  - Headache [Unknown]
